FAERS Safety Report 13011753 (Version 1)
Quarter: 2016Q4

REPORT INFORMATION
  Report Type: Other
  Country: CA (occurrence: CA)
  Receive Date: 20161209
  Receipt Date: 20161209
  Transmission Date: 20170207
  Serious: Yes (Disabling)
  Sender: FDA-Public Use
  Company Number: CA-APOTEX-2016AP015238

PATIENT
  Age: 76 Year
  Sex: Female

DRUGS (1)
  1. APO-ALENDRONATE [Suspect]
     Active Substance: ALENDRONATE SODIUM
     Indication: OSTEOPOROSIS
     Dosage: 70 MG, 1 EVERY 1 WEEK
     Route: 048

REACTIONS (1)
  - Migraine [Recovered/Resolved]
